FAERS Safety Report 16449119 (Version 1)
Quarter: 2019Q2

REPORT INFORMATION
  Report Type: Spontaneous
  Country: IT (occurrence: IT)
  Receive Date: 20190619
  Receipt Date: 20190619
  Transmission Date: 20190711
  Serious: Yes (Hospitalization)
  Sender: FDA-Public Use
  Company Number: IT-SA-2019SA157979

PATIENT
  Age: 55 Year
  Sex: Male

DRUGS (11)
  1. CLEXANE [Suspect]
     Active Substance: ENOXAPARIN SODIUM
     Indication: THROMBOSIS PROPHYLAXIS
     Dosage: UNK UNK, UNK
     Route: 058
     Dates: start: 20180712, end: 20180726
  2. BRINTELLIX [Concomitant]
     Active Substance: VORTIOXETINE HYDROBROMIDE
  3. CORLENTOR [Concomitant]
     Active Substance: IVABRADINE HYDROCHLORIDE
  4. TORVAST [Concomitant]
     Active Substance: ATORVASTATIN
  5. XANAX [Concomitant]
     Active Substance: ALPRAZOLAM
  6. KANRENOL [Concomitant]
     Active Substance: CANRENOATE POTASSIUM
  7. LENTO KALIUM [Concomitant]
     Active Substance: POTASSIUM CHLORIDE
  8. CARDICOR [Concomitant]
     Active Substance: BISOPROLOL
  9. COUMADIN [Suspect]
     Active Substance: WARFARIN SODIUM
     Indication: ATRIAL FIBRILLATION
     Dosage: UNK UNK, UNK
     Route: 048
     Dates: start: 20180712, end: 20180726
  10. ESOMEPRAZOLE. [Concomitant]
     Active Substance: ESOMEPRAZOLE MAGNESIUM
  11. LASIX [Concomitant]
     Active Substance: FUROSEMIDE
     Dosage: 250 MG, UNK

REACTIONS (2)
  - Peripheral swelling [Recovering/Resolving]
  - Haemarthrosis [Recovering/Resolving]

NARRATIVE: CASE EVENT DATE: 20180726
